FAERS Safety Report 10194754 (Version 1)
Quarter: 2014Q2

REPORT INFORMATION
  Report Type: Spontaneous
  Country: US (occurrence: US)
  Receive Date: 20140526
  Receipt Date: 20140526
  Transmission Date: 20141212
  Serious: Yes (Death)
  Sender: FDA-Public Use
  Company Number: US-ROCHE-1405602

PATIENT
  Sex: Female

DRUGS (3)
  1. KLONOPIN [Suspect]
     Indication: TOURETTE^S DISORDER
     Route: 065
  2. KLONOPIN [Suspect]
     Indication: ANXIETY
  3. KLONOPIN [Suspect]
     Indication: PANIC DISORDER

REACTIONS (1)
  - Completed suicide [Fatal]
